FAERS Safety Report 20375440 (Version 2)
Quarter: 2022Q1

REPORT INFORMATION
  Report Type: Spontaneous
  Country: NL (occurrence: NL)
  Receive Date: 20220125
  Receipt Date: 20220311
  Transmission Date: 20220424
  Serious: Yes (Other)
  Sender: FDA-Public Use
  Company Number: NL-NOVARTISPH-NVSC2022NL014148

PATIENT
  Age: 5 Day
  Sex: Female
  Weight: 3.25 kg

DRUGS (8)
  1. PREDNISONE [Suspect]
     Active Substance: PREDNISONE
     Indication: Intravascular papillary endothelial hyperplasia
     Dosage: 1 MG/KG, QD
     Route: 065
  2. PREDNISONE [Suspect]
     Active Substance: PREDNISONE
     Indication: Haemangioma-thrombocytopenia syndrome
     Dosage: 2 MG/KG, QD
     Route: 065
  3. PREDNISONE [Suspect]
     Active Substance: PREDNISONE
     Dosage: 6.4 MG, QW
     Route: 065
  4. PLASMA, FRESH FROZEN [Concomitant]
     Active Substance: HUMAN PLASMA
     Indication: Prophylaxis
     Dosage: UNK
     Route: 065
  5. PLASMA, FRESH FROZEN [Concomitant]
     Active Substance: HUMAN PLASMA
     Indication: Haemorrhage intracranial
  6. FIBRINOGEN [Concomitant]
     Active Substance: FIBRINOGEN HUMAN
     Indication: Prophylaxis
     Dosage: UNK
     Route: 065
  7. FIBRINOGEN [Concomitant]
     Active Substance: FIBRINOGEN HUMAN
     Indication: Haemorrhage intracranial
  8. COTRIMOXAZOLE [Concomitant]
     Active Substance: SULFAMETHOXAZOLE\TRIMETHOPRIM
     Indication: Prophylaxis
     Dosage: 18 MG/KG, QD
     Route: 065

REACTIONS (2)
  - Neoplasm progression [Unknown]
  - Product use in unapproved indication [Unknown]
